FAERS Safety Report 4620187-5 (Version None)
Quarter: 2005Q1

REPORT INFORMATION
  Report Type: 
  Country: None (occurrence: None)
  Receive Date: 20050328
  Receipt Date: 20050216
  Transmission Date: 20050727
  Serious: Yes (Hospitalization, Other)
  Sender: FDA-Public Use
  Company Number: GB-AMGEN-UK114471

PATIENT
  Age: 58 Year
  Sex: Male

DRUGS (3)
  1. ARANESP [Suspect]
     Indication: RENAL FAILURE CHRONIC
     Route: 058
     Dates: start: 20030301, end: 20050201
  2. ANTIHYPERTENSIVE MEDICATION NOS [Concomitant]
     Route: 065
  3. KETOVITE [Concomitant]
     Route: 065

REACTIONS (4)
  - ANTI-ERYTHROPOIETIN ANTIBODY POSITIVE [None]
  - APLASIA PURE RED CELL [None]
  - GASTRIC POLYPS [None]
  - GASTRIC ULCER HAEMORRHAGE [None]
